FAERS Safety Report 14284843 (Version 1)
Quarter: 2017Q4

REPORT INFORMATION
  Report Type: Spontaneous
  Country: US (occurrence: US)
  Receive Date: 20171214
  Receipt Date: 20171214
  Transmission Date: 20180321
  Serious: Yes (Life-Threatening)
  Sender: FDA-Public Use
  Company Number: None

PATIENT
  Age: 68 Year
  Sex: Male
  Weight: 88.3 kg

DRUGS (4)
  1. CEFAZOLIN SODIUM. [Suspect]
     Active Substance: CEFAZOLIN SODIUM
     Indication: ANTIBIOTIC PROPHYLAXIS
     Route: 042
     Dates: start: 20171207, end: 20171207
  2. FENTANYL CITRATE. [Concomitant]
     Active Substance: FENTANYL CITRATE
  3. ROCURONIUM BROMIDE. [Concomitant]
     Active Substance: ROCURONIUM BROMIDE
  4. PROPOFOL. [Concomitant]
     Active Substance: PROPOFOL

REACTIONS (2)
  - Hypotension [None]
  - Pulse absent [None]

NARRATIVE: CASE EVENT DATE: 20171207
